FAERS Safety Report 13024459 (Version 1)
Quarter: 2016Q4

REPORT INFORMATION
  Report Type: Spontaneous
  Country: CN (occurrence: CN)
  Receive Date: 20161213
  Receipt Date: 20161213
  Transmission Date: 20170207
  Serious: Yes (Hospitalization, Other)
  Sender: FDA-Public Use
  Company Number: CN-ASTRAZENECA-2016SF30563

PATIENT
  Age: 23521 Day
  Sex: Female
  Weight: 47 kg

DRUGS (9)
  1. METOPROLOL SUCCINATE. [Suspect]
     Active Substance: METOPROLOL SUCCINATE
     Indication: SINUS TACHYCARDIA
     Route: 048
     Dates: start: 20160401
  2. METOPROLOL SUCCINATE. [Suspect]
     Active Substance: METOPROLOL SUCCINATE
     Indication: SINUS TACHYCARDIA
     Dosage: 47.5MG ONCE/SINGLE ADMINISTRATION
     Route: 048
     Dates: start: 20160618
  3. METOPROLOL SUCCINATE. [Suspect]
     Active Substance: METOPROLOL SUCCINATE
     Indication: SINUS TACHYCARDIA
     Dosage: 23.75MG ONCE/SINGLE ADMINISTRATION
     Route: 048
     Dates: start: 20160620
  4. METOPROLOL SUCCINATE. [Suspect]
     Active Substance: METOPROLOL SUCCINATE
     Indication: SINUS TACHYCARDIA
     Route: 048
     Dates: start: 20160614, end: 20160617
  5. CHINESE TRADITIONAL MEDICINE NOS [Concomitant]
     Indication: CORONARY ARTERY DISEASE
     Route: 048
     Dates: start: 20160501, end: 20160622
  6. METOPROLOL SUCCINATE. [Suspect]
     Active Substance: METOPROLOL SUCCINATE
     Indication: SINUS TACHYCARDIA
     Route: 048
     Dates: start: 20160613
  7. METOPROLOL SUCCINATE. [Suspect]
     Active Substance: METOPROLOL SUCCINATE
     Indication: SINUS TACHYCARDIA
     Dosage: 23.75MG ONCE/SINGLE ADMINISTRATION
     Route: 048
     Dates: start: 20160617
  8. METOPROLOL SUCCINATE. [Suspect]
     Active Substance: METOPROLOL SUCCINATE
     Indication: SINUS TACHYCARDIA
     Route: 048
  9. TRIMETAZIDINE HYDROCHLORIDE [Concomitant]
     Active Substance: TRIMETAZIDINE DIHYDROCHLORIDE
     Indication: CORONARY ARTERY DISEASE
     Route: 048
     Dates: start: 20160501, end: 20160622

REACTIONS (7)
  - Extrasystoles [Unknown]
  - Dysuria [Recovering/Resolving]
  - Defect conduction intraventricular [Unknown]
  - Head discomfort [Recovering/Resolving]
  - Peripheral swelling [Recovering/Resolving]
  - Bladder disorder [Recovering/Resolving]
  - Hypoaesthesia oral [Recovering/Resolving]

NARRATIVE: CASE EVENT DATE: 20160528
